FAERS Safety Report 6311414-7 (Version None)
Quarter: 2009Q3

REPORT INFORMATION
  Report Type: 
  Country: None (occurrence: None)
  Receive Date: 20090817
  Receipt Date: 20090805
  Transmission Date: 20100115
  Serious: Yes (Hospitalization)
  Sender: FDA-Public Use
  Company Number: US-PFIZER INC-2009240271

PATIENT
  Sex: Female
  Weight: 49.07 kg

DRUGS (19)
  1. CP-751,871 [Suspect]
     Indication: RECTAL CANCER METASTATIC
     Dosage: 982 MG, EVERY 3 WEEKS
     Route: 042
     Dates: start: 20090701
  2. SUNITINIB MALATE [Suspect]
     Indication: RECTAL CANCER METASTATIC
     Dosage: 25 MG, CONTINUOUS DAILY DOSING
     Route: 048
     Dates: start: 20090701, end: 20090730
  3. OXYCODONE [Concomitant]
     Indication: ABDOMINAL PAIN
     Dosage: UNK
     Dates: start: 20090612
  4. OXYCODONE [Concomitant]
     Dosage: UNK
     Dates: start: 20050701
  5. ADVIL [Concomitant]
     Indication: PAIN
     Dosage: UNK
     Dates: start: 19900101
  6. DIAZEPAM [Concomitant]
     Indication: ANXIETY
     Dosage: UNK
     Dates: start: 20070401
  7. DIAZEPAM [Concomitant]
     Indication: INSOMNIA
  8. TEMAZEPAM [Concomitant]
     Indication: ANXIETY
     Dosage: UNK
     Dates: start: 20090615
  9. REGLAN [Concomitant]
     Indication: NAUSEA
     Dosage: UNK
  10. REGLAN [Concomitant]
     Indication: VOMITING
  11. ZOFRAN [Concomitant]
     Indication: NAUSEA
     Dosage: UNK
  12. ZOFRAN [Concomitant]
     Indication: VOMITING
  13. NYQUIL [Concomitant]
     Indication: COUGH
     Dosage: UNK
     Dates: start: 20070101
  14. SENOKOT [Concomitant]
     Indication: CONSTIPATION
     Dosage: UNK
     Dates: start: 20090615, end: 20090711
  15. NYSTATIN [Concomitant]
     Indication: ORAL CANDIDIASIS
     Dosage: UNK
     Dates: start: 20090626, end: 20090701
  16. COMPAZINE [Concomitant]
     Indication: NAUSEA
     Dosage: UNK
  17. COMPAZINE [Concomitant]
     Indication: VOMITING
  18. LACTULOSE [Concomitant]
     Indication: CONSTIPATION
     Dosage: UNK
     Dates: start: 20090701
  19. PRILOSEC [Concomitant]
     Indication: DYSPEPSIA
     Dosage: UNK
     Dates: start: 20090701

REACTIONS (9)
  - ABDOMINAL PAIN [None]
  - ASCITES [None]
  - CONSTIPATION [None]
  - DYSPEPSIA [None]
  - DYSPNOEA [None]
  - FATIGUE [None]
  - NAUSEA [None]
  - PRURITUS GENERALISED [None]
  - VOMITING [None]
